FAERS Safety Report 7252438-5 (Version None)
Quarter: 2011Q1

REPORT INFORMATION
  Report Type: 
  Country: None (occurrence: None)
  Receive Date: 20110129
  Receipt Date: 20100305
  Transmission Date: 20110831
  Serious: No
  Sender: FDA-Public Use
  Company Number: US-ABBOTT-09P-163-0602836-00

PATIENT
  Sex: Female
  Weight: 92.616 kg

DRUGS (8)
  1. PRIMIDONE [Concomitant]
     Indication: PRODUCT USED FOR UNKNOWN INDICATION
  2. HUMIRA [Suspect]
     Indication: PSORIATIC ARTHROPATHY
     Dates: start: 20090701
  3. MOBIC [Concomitant]
     Indication: PRODUCT USED FOR UNKNOWN INDICATION
  4. FOLIC ACID [Concomitant]
     Indication: PRODUCT USED FOR UNKNOWN INDICATION
  5. METOPROLOL [Concomitant]
     Indication: PRODUCT USED FOR UNKNOWN INDICATION
  6. ASPIRIN [Concomitant]
     Indication: PRODUCT USED FOR UNKNOWN INDICATION
  7. PRILOSEC [Concomitant]
     Indication: PRODUCT USED FOR UNKNOWN INDICATION
  8. MTX [Concomitant]
     Indication: PRODUCT USED FOR UNKNOWN INDICATION

REACTIONS (15)
  - DYSURIA [None]
  - VITAMIN D DECREASED [None]
  - URINARY TRACT INFECTION [None]
  - ORAL FUNGAL INFECTION [None]
  - ABDOMINAL PAIN UPPER [None]
  - GASTROINTESTINAL VIRAL INFECTION [None]
  - ABDOMINAL PAIN [None]
  - PARAESTHESIA [None]
  - CYSTITIS [None]
  - SKIN PAPILLOMA [None]
  - OVARIAN CYST [None]
  - SLEEP APNOEA SYNDROME [None]
  - GRIP STRENGTH DECREASED [None]
  - VOMITING [None]
  - WEIGHT DECREASED [None]
